FAERS Safety Report 25427303 (Version 2)
Quarter: 2025Q4

REPORT INFORMATION
  Report Type: Report from Study
  Country: US (occurrence: US)
  Receive Date: 20250612
  Receipt Date: 20251119
  Transmission Date: 20260118
  Serious: Yes (Other)
  Sender: ROCHE
  Company Number: US-ROCHE-10000308253

PATIENT
  Age: 58 Year
  Sex: Female

DRUGS (3)
  1. ZELBORAF [Suspect]
     Active Substance: VEMURAFENIB
     Indication: Metastases to lymph nodes
     Dosage: TAKE 4 TABLETS BY MOUTH EVERY 12 HOURS
     Route: 048
  2. COTELLIC [Suspect]
     Active Substance: COBIMETINIB FUMARATE
     Indication: Metastases to lymph nodes
     Dosage: TAKE 4 TABLET(S) BY MOUTH EVERY 12 HOURS
     Route: 048
  3. COTELLIC [Suspect]
     Active Substance: COBIMETINIB FUMARATE
     Dosage: TAKE 3 TABLET(S) BY MOUTH DAILY FOR 21 DAYS , REST FOR 7 DAYS
     Route: 048

REACTIONS (3)
  - Off label use [Unknown]
  - Cerebrovascular accident [Unknown]
  - Bell^s palsy [Unknown]
